FAERS Safety Report 22621679 (Version 1)
Quarter: 2023Q2

REPORT INFORMATION
  Report Type: Spontaneous
  Country: US (occurrence: None)
  Receive Date: 20230619
  Receipt Date: 20230619
  Transmission Date: 20230722
  Serious: Yes (Other)
  Sender: FDA-Public Use
  Company Number: None

PATIENT
  Age: 30 Year
  Sex: Female
  Weight: 72.9 kg

DRUGS (1)
  1. ADVAIR HFA [Suspect]
     Active Substance: FLUTICASONE PROPIONATE\SALMETEROL XINAFOATE
     Indication: Asthma
     Dosage: FREQUENCY : TWICE A DAY;?OTHER ROUTE : INHALED;?
     Route: 050
     Dates: start: 20230525, end: 20230619

REACTIONS (2)
  - Oropharyngeal pain [None]
  - Headache [None]

NARRATIVE: CASE EVENT DATE: 20230619
